FAERS Safety Report 8436567-6 (Version None)
Quarter: 2012Q2

REPORT INFORMATION
  Report Type: 
  Country: None (occurrence: None)
  Receive Date: 20120614
  Receipt Date: 20120601
  Transmission Date: 20120825
  Serious: No
  Sender: FDA-Public Use
  Company Number: US-ASTRAZENECA-2012SE37362

PATIENT
  Age: 57 Year
  Sex: Female

DRUGS (11)
  1. MULTIVITAMIN WITH IRON [Concomitant]
  2. ASPIRIN [Concomitant]
  3. PENTOXIFYLLINE [Concomitant]
  4. LIPITOR [Concomitant]
  5. TOPROL-XL [Suspect]
     Route: 048
  6. HYDROCHLOROTHIAZIDE [Concomitant]
  7. POTASSIUM CHLORIDE [Concomitant]
  8. HYDROXYZINE [Concomitant]
  9. ACCUPRIL [Concomitant]
  10. GABAPENTIN [Concomitant]
  11. HUMALOG [Concomitant]

REACTIONS (10)
  - CONSTIPATION [None]
  - HYPERTENSION [None]
  - ANXIETY [None]
  - HYPERLIPIDAEMIA [None]
  - OSTEOARTHRITIS [None]
  - NEUROPATHY PERIPHERAL [None]
  - IRON DEFICIENCY ANAEMIA [None]
  - DIABETES MELLITUS [None]
  - URINARY TRACT INFECTION [None]
  - PERIPHERAL VASCULAR DISORDER [None]
